FAERS Safety Report 6018781-2 (Version None)
Quarter: 2008Q4

REPORT INFORMATION
  Report Type: 
  Country: None (occurrence: None)
  Receive Date: 20081222
  Receipt Date: 20081209
  Transmission Date: 20090506
  Serious: Yes (Other)
  Sender: FDA-Public Use
  Company Number: 232855K08USA

PATIENT
  Age: 35 Year
  Sex: Female

DRUGS (2)
  1. REBIF [Suspect]
     Indication: MULTIPLE SCLEROSIS
     Dosage: 44 MCG, 3 IN 1 WEEKS, SUBCUTANEOUS
     Route: 058
     Dates: start: 20081015
  2. PROZAC [Concomitant]

REACTIONS (9)
  - ABDOMINAL DISTENSION [None]
  - AREFLEXIA [None]
  - CONVULSION [None]
  - DEMYELINATION [None]
  - DYSPEPSIA [None]
  - EYE PAIN [None]
  - FATIGUE [None]
  - MULTIPLE SCLEROSIS RELAPSE [None]
  - PANIC ATTACK [None]
